FAERS Safety Report 5787962-5 (Version None)
Quarter: 2008Q2

REPORT INFORMATION
  Report Type: 
  Country: None (occurrence: None)
  Receive Date: 20080625
  Receipt Date: 20080623
  Transmission Date: 20081010
  Serious: Yes (Hospitalization)
  Sender: FDA-Public Use
  Company Number: D0057708A

PATIENT
  Age: 46 Year
  Sex: Male
  Weight: 86 kg

DRUGS (5)
  1. ELONTRIL [Suspect]
     Dosage: 150MG PER DAY
     Route: 048
     Dates: start: 20071015, end: 20071213
  2. LITHIUM CARBONATE [Concomitant]
     Indication: DEPRESSION
     Dosage: 450MG TWICE PER DAY
     Route: 048
     Dates: start: 20050101
  3. TRAZODONE HCL [Concomitant]
     Indication: DEPRESSION
     Dosage: 300MG PER DAY
     Route: 048
     Dates: start: 20050101
  4. BUSPIRONE HYDROCHLORIDE [Concomitant]
     Indication: DEPRESSION
     Dosage: 10MG THREE TIMES PER DAY
     Route: 048
     Dates: start: 20070101, end: 20071201
  5. ZOLPIDEM [Concomitant]
     Indication: DEPRESSION
     Dosage: 10MG PER DAY
     Route: 048
     Dates: start: 20060101

REACTIONS (1)
  - DEPRESSION [None]
